FAERS Safety Report 24890013 (Version 3)
Quarter: 2025Q1

REPORT INFORMATION
  Report Type: Spontaneous
  Country: GB (occurrence: GB)
  Receive Date: 20250127
  Receipt Date: 20250213
  Transmission Date: 20250408
  Serious: Yes (Death)
  Sender: MYLAN
  Company Number: GB-MYLANLABS-2025M1006418

PATIENT

DRUGS (1)
  1. EPIPEN [Suspect]
     Active Substance: EPINEPHRINE
     Indication: Anaphylactic reaction
     Route: 065

REACTIONS (1)
  - Anaphylactic reaction [Fatal]
